FAERS Safety Report 5878929-7 (Version None)
Quarter: 2008Q3

REPORT INFORMATION
  Report Type: 
  Country: None (occurrence: None)
  Receive Date: 20080910
  Receipt Date: 20080822
  Transmission Date: 20090109
  Serious: Yes (Hospitalization)
  Sender: FDA-Public Use
  Company Number: S08-DEN-02225-01

PATIENT
  Age: 51 Year
  Sex: Male
  Weight: 125 kg

DRUGS (1)
  1. ESCITALOPRAM OXALATE [Suspect]
     Indication: DEPRESSION
     Dosage: 20 MG, (10 MG, 2 IN 1 D), ORAL
     Route: 048
     Dates: start: 20041101, end: 20060721

REACTIONS (1)
  - GYNAECOMASTIA [None]
